FAERS Safety Report 8559591-1 (Version None)
Quarter: 2012Q3

REPORT INFORMATION
  Report Type: 
  Country: None (occurrence: None)
  Receive Date: 20120802
  Receipt Date: 20120723
  Transmission Date: 20120928
  Serious: Yes (Hospitalization)
  Sender: FDA-Public Use
  Company Number: US-MYLANLABS-2012S1013404

PATIENT
  Age: 65 Year
  Sex: Male

DRUGS (10)
  1. SAXAGLIPTIN [Suspect]
     Dates: start: 20120601
  2. SAXAGLIPTIN [Suspect]
     Indication: TYPE 2 DIABETES MELLITUS
     Dates: start: 20101211, end: 20110402
  3. LANTUS [Suspect]
     Indication: TYPE 2 DIABETES MELLITUS
  4. PLACEBO [Suspect]
     Dates: start: 20120601
  5. HYDROCHLOROTHIAZIDE [Concomitant]
     Dates: start: 20111212, end: 20111214
  6. INSULIN HUMAN [Suspect]
     Indication: TYPE 2 DIABETES MELLITUS
  7. BACLOFEN [Suspect]
  8. LISINOPRIL [Concomitant]
     Dates: end: 20110408
  9. PLACEBO [Suspect]
     Indication: TYPE 2 DIABETES MELLITUS
     Dates: start: 20101211, end: 20110402
  10. ASPIRIN [Concomitant]

REACTIONS (4)
  - CHEST PAIN [None]
  - ENCEPHALOPATHY [None]
  - INFLUENZA [None]
  - RENAL FAILURE ACUTE [None]
